FAERS Safety Report 15016752 (Version 1)
Quarter: 2018Q2

REPORT INFORMATION
  Report Type: Spontaneous
  Country: US (occurrence: US)
  Receive Date: 20180531
  Receipt Date: 20180531
  Transmission Date: 20180711
  Serious: No
  Sender: FDA-Public Use
  Company Number: None

PATIENT
  Age: 36 Year
  Sex: Female
  Weight: 66.6 kg

DRUGS (1)
  1. IC SPIRONOLACTONE 50MG TABLET [Suspect]
     Active Substance: SPIRONOLACTONE
     Indication: ACNE CYSTIC
     Dosage: ?          QUANTITY:1 TABLET(S);?
     Route: 048
     Dates: start: 20180121, end: 20180513

REACTIONS (3)
  - Alopecia [None]
  - Hair texture abnormal [None]
  - Trichorrhexis [None]

NARRATIVE: CASE EVENT DATE: 20180513
